FAERS Safety Report 11500235 (Version 3)
Quarter: 2015Q4

REPORT INFORMATION
  Report Type: Report from Study
  Country: US (occurrence: US)
  Receive Date: 20150914
  Receipt Date: 20151210
  Transmission Date: 20160304
  Serious: Yes (Other)
  Sender: FDA-Public Use
  Company Number: US-SA-2014SA032645

PATIENT
  Age: 40 Year
  Sex: Male

DRUGS (1)
  1. AUBAGIO [Suspect]
     Active Substance: TERIFLUNOMIDE
     Indication: MULTIPLE SCLEROSIS
     Route: 048
     Dates: start: 20140219

REACTIONS (10)
  - Laceration [Unknown]
  - Abasia [Recovering/Resolving]
  - Depression [Unknown]
  - Fall [Unknown]
  - Hypersomnia [Unknown]
  - Hypoaesthesia [Unknown]
  - Joint swelling [Not Recovered/Not Resolved]
  - Balance disorder [Unknown]
  - Confusional state [Unknown]
  - Memory impairment [Not Recovered/Not Resolved]
